FAERS Safety Report 5557975-7 (Version None)
Quarter: 2007Q4

REPORT INFORMATION
  Report Type: 
  Country: None (occurrence: None)
  Receive Date: 20071211
  Receipt Date: 20071130
  Transmission Date: 20080405
  Serious: Yes (Disabling)
  Sender: FDA-Public Use
  Company Number: ENTC2007-0335

PATIENT
  Age: 75 Year
  Sex: Male

DRUGS (1)
  1. STALEVO (LEVODOPA, CARSIDOPA, ENTACAPONE) [Suspect]
     Dosage: 600 MG (150 MG,4 IN 1 D) ; 400 MG (100 MG,4 IN 1 D)

REACTIONS (3)
  - DIARRHOEA [None]
  - FREEZING PHENOMENON [None]
  - INCONTINENCE [None]
